FAERS Safety Report 5025338-9 (Version None)
Quarter: 2006Q2

REPORT INFORMATION
  Report Type: 
  Country: None (occurrence: None)
  Receive Date: 20060426
  Receipt Date: 20060113
  Transmission Date: 20061013
  Serious: Yes (Other)
  Sender: FDA-Public Use
  Company Number: 2006008812

PATIENT
  Age: 39 Year
  Sex: Female
  Weight: 83.9154 kg

DRUGS (4)
  1. LYRICA (PREGABALAN) [Suspect]
     Indication: PARAESTHESIA
     Dosage: 50 MG (50 MG 1 IN 1 D) ORAL
     Route: 048
     Dates: start: 20051101
  2. PREDNISONE TAB [Suspect]
     Indication: PARAESTHESIA
     Route: 065
     Dates: start: 20051121
  3. METFORMIN [Concomitant]
  4. HYDROXYCHLOROQUINE (HYDROXYCHLOROQUINE) [Concomitant]

REACTIONS (5)
  - MUSCLE TIGHTNESS [None]
  - MYALGIA [None]
  - PAIN OF SKIN [None]
  - PARAESTHESIA [None]
  - SKIN TIGHTNESS [None]
